FAERS Safety Report 25830375 (Version 1)
Quarter: 2025Q3

REPORT INFORMATION
  Report Type: Spontaneous
  Country: AU (occurrence: AU)
  Receive Date: 20250922
  Receipt Date: 20250922
  Transmission Date: 20251021
  Serious: Yes (Hospitalization, Other)
  Sender: EPIC PHARM
  Company Number: AU-EPICPHARMA-AU-2025EPCLIT01096

PATIENT
  Age: 81 Year
  Sex: Male

DRUGS (1)
  1. AMIODARONE HYDROCHLORIDE [Suspect]
     Active Substance: AMIODARONE HYDROCHLORIDE
     Indication: Atrial fibrillation
     Route: 065

REACTIONS (4)
  - Cardiac failure [Unknown]
  - Cardiogenic shock [Unknown]
  - Hypothyroidism [Unknown]
  - Product use in unapproved indication [Unknown]
